FAERS Safety Report 12531217 (Version 1)
Quarter: 2016Q3

REPORT INFORMATION
  Report Type: Spontaneous
  Country: US (occurrence: None)
  Receive Date: 20160705
  Receipt Date: 20160705
  Transmission Date: 20161109
  Serious: No
  Sender: FDA-Public Use
  Company Number: None

PATIENT
  Age: 60 Year
  Sex: Male

DRUGS (1)
  1. ENOXAPARIN SYR 80MG/0.8ML [Suspect]
     Active Substance: ENOXAPARIN SODIUM
     Indication: PLASMA CELL MYELOMA

REACTIONS (2)
  - Liquid product physical issue [None]
  - Syringe issue [None]

NARRATIVE: CASE EVENT DATE: 20160520
